FAERS Safety Report 25918974 (Version 1)
Quarter: 2025Q4

REPORT INFORMATION
  Report Type: Spontaneous
  Country: EU (occurrence: EU)
  Receive Date: 20251014
  Receipt Date: 20251014
  Transmission Date: 20260117
  Serious: Yes (Other)
  Sender: MYLAN
  Company Number: None

PATIENT
  Age: 26 Year
  Sex: Male

DRUGS (32)
  1. ACETAMINOPHEN [Suspect]
     Active Substance: ACETAMINOPHEN
     Indication: Product used for unknown indication
     Dosage: UNK
     Dates: start: 20250901, end: 20250901
  2. ACETAMINOPHEN [Suspect]
     Active Substance: ACETAMINOPHEN
     Dosage: UNK
     Route: 045
     Dates: start: 20250901, end: 20250901
  3. ACETAMINOPHEN [Suspect]
     Active Substance: ACETAMINOPHEN
     Dosage: UNK
     Route: 045
     Dates: start: 20250901, end: 20250901
  4. ACETAMINOPHEN [Suspect]
     Active Substance: ACETAMINOPHEN
     Dosage: UNK
     Dates: start: 20250901, end: 20250901
  5. HEROIN [Suspect]
     Active Substance: DIAMORPHINE
     Indication: Product used for unknown indication
     Dosage: UNK
     Dates: start: 20250901, end: 20250901
  6. HEROIN [Suspect]
     Active Substance: DIAMORPHINE
     Dosage: UNK
     Dates: start: 20250901, end: 20250901
  7. HEROIN [Suspect]
     Active Substance: DIAMORPHINE
     Dosage: UNK
     Route: 045
     Dates: start: 20250901, end: 20250901
  8. HEROIN [Suspect]
     Active Substance: DIAMORPHINE
     Dosage: UNK
     Route: 045
     Dates: start: 20250901, end: 20250901
  9. HEROIN [Suspect]
     Active Substance: DIAMORPHINE
     Dosage: UNK
  10. HEROIN [Suspect]
     Active Substance: DIAMORPHINE
     Dosage: UNK
  11. HEROIN [Suspect]
     Active Substance: DIAMORPHINE
     Dosage: UNK
     Route: 045
  12. HEROIN [Suspect]
     Active Substance: DIAMORPHINE
     Dosage: UNK
     Route: 045
  13. MORPHINE [Suspect]
     Active Substance: MORPHINE
     Indication: Product used for unknown indication
     Dosage: UNK
     Dates: start: 20250901, end: 20250901
  14. MORPHINE [Suspect]
     Active Substance: MORPHINE
     Dosage: UNK
     Route: 045
     Dates: start: 20250901, end: 20250901
  15. MORPHINE [Suspect]
     Active Substance: MORPHINE
     Dosage: UNK
     Route: 045
     Dates: start: 20250901, end: 20250901
  16. MORPHINE [Suspect]
     Active Substance: MORPHINE
     Dosage: UNK
     Dates: start: 20250901, end: 20250901
  17. CODEINE [Suspect]
     Active Substance: CODEINE
     Indication: Product used for unknown indication
     Dosage: UNK
     Dates: start: 20250901, end: 20250901
  18. CODEINE [Suspect]
     Active Substance: CODEINE
     Dosage: UNK
     Route: 045
     Dates: start: 20250901, end: 20250901
  19. CODEINE [Suspect]
     Active Substance: CODEINE
     Dosage: UNK
     Route: 045
     Dates: start: 20250901, end: 20250901
  20. CODEINE [Suspect]
     Active Substance: CODEINE
     Dosage: UNK
     Dates: start: 20250901, end: 20250901
  21. CAFFEINE [Suspect]
     Active Substance: CAFFEINE
     Indication: Product used for unknown indication
     Dosage: UNK
     Dates: start: 20250901, end: 20250901
  22. CAFFEINE [Suspect]
     Active Substance: CAFFEINE
     Dosage: UNK
     Route: 045
     Dates: start: 20250901, end: 20250901
  23. CAFFEINE [Suspect]
     Active Substance: CAFFEINE
     Dosage: UNK
     Route: 045
     Dates: start: 20250901, end: 20250901
  24. CAFFEINE [Suspect]
     Active Substance: CAFFEINE
     Dosage: UNK
     Dates: start: 20250901, end: 20250901
  25. CANNABIS SATIVA SUBSP. INDICA TOP [Suspect]
     Active Substance: CANNABIS SATIVA SUBSP. INDICA TOP
     Indication: Product used for unknown indication
     Dosage: UNK (1 JOINT)
     Dates: start: 20250901, end: 20250901
  26. CANNABIS SATIVA SUBSP. INDICA TOP [Suspect]
     Active Substance: CANNABIS SATIVA SUBSP. INDICA TOP
     Dosage: UNK (1 JOINT)
     Dates: start: 20250901, end: 20250901
  27. CANNABIS SATIVA SUBSP. INDICA TOP [Suspect]
     Active Substance: CANNABIS SATIVA SUBSP. INDICA TOP
     Dosage: UNK (1 JOINT)
     Route: 055
     Dates: start: 20250901, end: 20250901
  28. CANNABIS SATIVA SUBSP. INDICA TOP [Suspect]
     Active Substance: CANNABIS SATIVA SUBSP. INDICA TOP
     Dosage: UNK (1 JOINT)
     Route: 055
     Dates: start: 20250901, end: 20250901
  29. CANNABIS SATIVA SUBSP. INDICA TOP [Suspect]
     Active Substance: CANNABIS SATIVA SUBSP. INDICA TOP
     Dosage: UNK
  30. CANNABIS SATIVA SUBSP. INDICA TOP [Suspect]
     Active Substance: CANNABIS SATIVA SUBSP. INDICA TOP
     Dosage: UNK
  31. CANNABIS SATIVA SUBSP. INDICA TOP [Suspect]
     Active Substance: CANNABIS SATIVA SUBSP. INDICA TOP
     Dosage: UNK
     Route: 055
  32. CANNABIS SATIVA SUBSP. INDICA TOP [Suspect]
     Active Substance: CANNABIS SATIVA SUBSP. INDICA TOP
     Dosage: UNK
     Route: 055

REACTIONS (4)
  - Drug abuse [Not Recovered/Not Resolved]
  - Somnolence [Recovered/Resolved]
  - Vomiting [Recovered/Resolved]
  - Pruritus [Recovered/Resolved]

NARRATIVE: CASE EVENT DATE: 20250901
